FAERS Safety Report 9113579 (Version 3)
Quarter: 2013Q2

REPORT INFORMATION
  Report Type: Spontaneous
  Country: SE (occurrence: SE)
  Receive Date: 20130208
  Receipt Date: 20130405
  Transmission Date: 20140414
  Serious: Yes (Hospitalization, Other)
  Sender: FDA-Public Use
  Company Number: SE-ASTRAZENECA-2013SE07268

PATIENT
  Age: 1014 Month
  Sex: Female

DRUGS (2)
  1. BRILIQUE [Suspect]
     Route: 048
     Dates: start: 20130104, end: 20130108
  2. CANDESARTAN ARROW (NON AZ PRODUCT) [Suspect]
     Route: 065

REACTIONS (7)
  - Fatigue [Unknown]
  - Anaemia [Unknown]
  - Hyperkalaemia [Unknown]
  - Haematoma [Unknown]
  - Dyspnoea [Unknown]
  - C-reactive protein increased [Unknown]
  - Incorrect dose administered [Unknown]
